FAERS Safety Report 24583249 (Version 2)
Quarter: 2025Q1

REPORT INFORMATION
  Report Type: Spontaneous
  Country: FR (occurrence: FR)
  Receive Date: 20241106
  Receipt Date: 20250103
  Transmission Date: 20250408
  Serious: Yes (Hospitalization)
  Sender: ACCORD
  Company Number: None

PATIENT
  Age: 86 Year
  Sex: Female

DRUGS (11)
  1. METHOTREXATE [Suspect]
     Active Substance: METHOTREXATE
     Indication: Pemphigoid
     Dates: start: 20200311, end: 20210120
  2. ROSUVASTATIN [Concomitant]
     Active Substance: ROSUVASTATIN
  3. INSULIN GLARGINE [Concomitant]
     Active Substance: INSULIN GLARGINE
  4. FOLIC ACID [Concomitant]
     Active Substance: FOLIC ACID
  5. ESOMEPRAZOLE [Concomitant]
     Active Substance: ESOMEPRAZOLE
  6. BILASTINE [Concomitant]
     Active Substance: BILASTINE
  7. METFORMIN [Concomitant]
     Active Substance: METFORMIN HYDROCHLORIDE
  8. KARDEGIC [Concomitant]
     Active Substance: ASPIRIN DL-LYSINE
  9. METHOTREXATE [Suspect]
     Active Substance: METHOTREXATE
     Indication: Pemphigoid
     Dates: start: 20210127, end: 20210623
  10. METHOTREXATE [Suspect]
     Active Substance: METHOTREXATE
     Indication: Pemphigoid
     Dates: start: 20210929, end: 20230222
  11. METHOTREXATE [Suspect]
     Active Substance: METHOTREXATE
     Indication: Pemphigoid
     Dates: start: 20230201, end: 20230710

REACTIONS (1)
  - Malignant sweat gland neoplasm [Not Recovered/Not Resolved]

NARRATIVE: CASE EVENT DATE: 20220323
